FAERS Safety Report 12473107 (Version 3)
Quarter: 2016Q2

REPORT INFORMATION
  Report Type: Spontaneous
  Country: US (occurrence: US)
  Receive Date: 20160616
  Receipt Date: 20160622
  Transmission Date: 20160815
  Serious: Yes (Other)
  Sender: FDA-Public Use
  Company Number: US-REGENERON PHARMACEUTICALS, INC.-2016-18175

PATIENT

DRUGS (2)
  1. EYLEA [Suspect]
     Active Substance: AFLIBERCEPT
     Indication: RETINAL VEIN OCCLUSION
     Dosage: UNK, OD
     Dates: start: 20160606, end: 20160606
  2. TRAVATAN Z [Concomitant]
     Active Substance: TRAVOPROST
     Indication: GLAUCOMA

REACTIONS (8)
  - Eye pain [Recovered/Resolved]
  - Cataract [Unknown]
  - Photophobia [Recovered/Resolved]
  - Ocular discomfort [Unknown]
  - Anterior chamber cell [Unknown]
  - Visual acuity reduced [Recovered/Resolved]
  - Lens disorder [Unknown]
  - Product contamination [Unknown]

NARRATIVE: CASE EVENT DATE: 20160610
